FAERS Safety Report 4878841-6 (Version None)
Quarter: 2006Q1

REPORT INFORMATION
  Report Type: 
  Country: None (occurrence: None)
  Receive Date: 20060112
  Receipt Date: 20060102
  Transmission Date: 20060701
  Serious: Yes (Death, Hospitalization)
  Sender: FDA-Public Use
  Company Number: SE-GLAXOSMITHKLINE-B0405272A

PATIENT
  Age: 90 Year
  Sex: Female

DRUGS (3)
  1. ACETAMINOPHEN [Suspect]
     Dates: start: 20050701, end: 20050701
  2. CIPROXIN [Suspect]
     Route: 048
     Dates: start: 20050722, end: 20050727
  3. LANSOPRAZOLE [Suspect]
     Route: 048
     Dates: start: 20050724

REACTIONS (9)
  - CHROMATURIA [None]
  - DYSPHAGIA [None]
  - DYSPNOEA [None]
  - PURPURA [None]
  - RASH MACULO-PAPULAR [None]
  - RHABDOMYOLYSIS [None]
  - SPEECH DISORDER [None]
  - SWELLING [None]
  - SWOLLEN TONGUE [None]
